FAERS Safety Report 17620871 (Version 2)
Quarter: 2020Q2

REPORT INFORMATION
  Report Type: Spontaneous
  Country: GB (occurrence: GB)
  Receive Date: 20200403
  Receipt Date: 20200513
  Transmission Date: 20200713
  Serious: Yes (Other)
  Sender: FDA-Public Use
  Company Number: GB-PFIZER INC-2020135252

PATIENT
  Age: 41 Year
  Sex: Female

DRUGS (5)
  1. ESCITALOPRAM [Suspect]
     Active Substance: ESCITALOPRAM OXALATE
     Indication: ANXIETY
     Dosage: ONE HALF OF 10 MG TAB INITIALLY, INCREASE 5 MG TO 10 MG
     Route: 048
     Dates: start: 20191216, end: 20200120
  2. ESCITALOPRAM [Suspect]
     Active Substance: ESCITALOPRAM OXALATE
     Indication: OBSESSIVE-COMPULSIVE DISORDER
     Dosage: 5 MG, 1X/DAY (5 MG REDUCING FROM 10 MG TO STOP)
     Route: 048
     Dates: start: 20200218
  3. LEVOTHYROXINE. [Concomitant]
     Active Substance: LEVOTHYROXINE
  4. ESCITALOPRAM [Suspect]
     Active Substance: ESCITALOPRAM OXALATE
     Indication: DEPRESSED MOOD
     Dosage: ONE HALF OF 10 MG TAB INITIALLY, INCREASE 5 MG TO 10 MG
     Route: 048
     Dates: start: 20190127, end: 20200217
  5. SERTRALINE HCL [Suspect]
     Active Substance: SERTRALINE HYDROCHLORIDE
     Dates: start: 20200128

REACTIONS (3)
  - Suicidal ideation [Recovered/Resolved]
  - Drug ineffective [Unknown]
  - Drug intolerance [Unknown]

NARRATIVE: CASE EVENT DATE: 20200127
